FAERS Safety Report 9660085 (Version 2)
Quarter: 2013Q4

REPORT INFORMATION
  Report Type: Spontaneous
  Country: DE (occurrence: FR)
  Receive Date: 20131031
  Receipt Date: 20131121
  Transmission Date: 20140711
  Serious: Yes (Hospitalization)
  Sender: FDA-Public Use
  Company Number: US-MERZ PHARMACEUTICALS, LLC DRUG SAFETY-13MRZ-00172

PATIENT
  Age: 1 Month
  Sex: Male

DRUGS (5)
  1. AETHOXYSKLEROL [Suspect]
     Indication: OFF LABEL USE
     Dosage: FIVE (5) MILLILITERS
     Route: 042
     Dates: start: 20130913, end: 20130913
  2. AETHOXYSKLEROL [Suspect]
     Indication: INTRA-ABDOMINAL HAEMANGIOMA
  3. SOLUPRED [Concomitant]
     Dosage: 5 MG/DAY
  4. PROPRANOLOL [Concomitant]
     Dosage: 6 MG/KG/DAY
  5. MOPRAL [Concomitant]
     Dosage: 4 MG/DAY

REACTIONS (3)
  - Cardiac arrest [Recovered/Resolved]
  - Shock [Recovered/Resolved]
  - Hypotension [Recovered/Resolved]
